FAERS Safety Report 26021258 (Version 1)
Quarter: 2025Q4

REPORT INFORMATION
  Report Type: Spontaneous
  Country: US (occurrence: US)
  Receive Date: 20251110
  Receipt Date: 20251110
  Transmission Date: 20260117
  Serious: Yes (Life-Threatening, Other)
  Sender: PFIZER
  Company Number: US-PFIZER INC-PV202500129792

PATIENT
  Age: 1 Year
  Sex: Male

DRUGS (9)
  1. SULFASALAZINE [Suspect]
     Active Substance: SULFASALAZINE
     Indication: Inflammatory bowel disease
     Dosage: UNK
  2. SULFASALAZINE [Suspect]
     Active Substance: SULFASALAZINE
     Indication: Colitis
  3. SULFASALAZINE [Suspect]
     Active Substance: SULFASALAZINE
     Indication: Colitis
  4. INFLIXIMAB [Suspect]
     Active Substance: INFLIXIMAB
     Indication: Inflammatory bowel disease
     Dosage: 5 MG/KG (STANDARD DOSING)
  5. INFLIXIMAB [Suspect]
     Active Substance: INFLIXIMAB
     Indication: Colitis
     Dosage: 10 MG/KG (QUICKLY ESCALATED AND  DOSING INTERVAL SHORTENED)
  6. INFLIXIMAB [Suspect]
     Active Substance: INFLIXIMAB
     Indication: Colitis
  7. ADALIMUMAB [Suspect]
     Active Substance: ADALIMUMAB
     Indication: Inflammatory bowel disease
     Dosage: UNK
     Route: 058
  8. ADALIMUMAB [Suspect]
     Active Substance: ADALIMUMAB
     Indication: Colitis
  9. ADALIMUMAB [Suspect]
     Active Substance: ADALIMUMAB
     Indication: Colitis

REACTIONS (2)
  - Drug ineffective [Recovering/Resolving]
  - Off label use [Unknown]
